FAERS Safety Report 9925118 (Version 1)
Quarter: 2014Q1

REPORT INFORMATION
  Report Type: Spontaneous
  Country: US (occurrence: None)
  Receive Date: 20140225
  Receipt Date: 20140225
  Transmission Date: 20141002
  Serious: Yes (Hospitalization)
  Sender: FDA-Public Use
  Company Number: None

PATIENT
  Age: 4 Year
  Sex: Female
  Weight: 13.61 kg

DRUGS (1)
  1. SINGULAIR [Suspect]
     Indication: HYPERSENSITIVITY
     Dosage: 1 ONCE DAILY
     Route: 048
     Dates: start: 20121014, end: 20131015

REACTIONS (16)
  - Nightmare [None]
  - Insomnia [None]
  - Middle insomnia [None]
  - Stress [None]
  - Agitation [None]
  - Screaming [None]
  - Social avoidant behaviour [None]
  - Confusional state [None]
  - Hallucination [None]
  - Abnormal behaviour [None]
  - Physical assault [None]
  - Verbal abuse [None]
  - Anger [None]
  - Impulsive behaviour [None]
  - Affective disorder [None]
  - Suicidal ideation [None]
